FAERS Safety Report 7996034-0 (Version None)
Quarter: 2011Q4

REPORT INFORMATION
  Report Type: 
  Country: None (occurrence: None)
  Receive Date: 20111220
  Receipt Date: 20111208
  Transmission Date: 20120403
  Serious: Yes (Hospitalization)
  Sender: FDA-Public Use
  Company Number: PHFR2011GB007085

PATIENT
  Age: 61 Year
  Sex: Male

DRUGS (2)
  1. DESERIL [Suspect]
     Indication: CLUSTER HEADACHE
     Dosage: 12 MG, QD
     Route: 048
     Dates: start: 20090101, end: 20111031
  2. SUMATRIPTAN [Concomitant]
     Indication: CLUSTER HEADACHE
     Route: 048

REACTIONS (1)
  - ACUTE MYOCARDIAL INFARCTION [None]
